FAERS Safety Report 14686856 (Version 1)
Quarter: 2018Q1

REPORT INFORMATION
  Report Type: Report from Study
  Country: US (occurrence: US)
  Receive Date: 20180327
  Receipt Date: 20180327
  Transmission Date: 20180509
  Serious: Yes (Other)
  Sender: FDA-Public Use
  Company Number: US-TAKEDA-2018TUS003072

PATIENT
  Sex: Female

DRUGS (1)
  1. PONATINIB [Suspect]
     Active Substance: PONATINIB
     Indication: CHRONIC MYELOID LEUKAEMIA
     Dosage: 30 MG, QD
     Route: 048
     Dates: start: 20180102

REACTIONS (7)
  - Cough [Unknown]
  - Abdominal distension [Unknown]
  - Bone lesion [Unknown]
  - Kyphosis [Unknown]
  - Pain [Unknown]
  - Rib fracture [Unknown]
  - Spinal compression fracture [Unknown]
